FAERS Safety Report 6244296-2 (Version None)
Quarter: 2009Q2

REPORT INFORMATION
  Report Type: 
  Country: None (occurrence: None)
  Receive Date: 20090623
  Receipt Date: 20090612
  Transmission Date: 20091009
  Serious: Yes (Other)
  Sender: FDA-Public Use
  Company Number: GXKR2009GB06869

PATIENT
  Age: 49 Year
  Sex: Female

DRUGS (1)
  1. CEFTRIAXONE [Suspect]
     Indication: CELLULITIS
     Dosage: 2 G, INTRAVENOUS
     Route: 042
     Dates: start: 20081127, end: 20081129

REACTIONS (2)
  - ECZEMA [None]
  - RASH [None]
